FAERS Safety Report 22221371 (Version 3)
Quarter: 2023Q2

REPORT INFORMATION
  Report Type: Spontaneous
  Country: US (occurrence: US)
  Receive Date: 20230418
  Receipt Date: 20230426
  Transmission Date: 20230722
  Serious: Yes (Hospitalization)
  Sender: FDA-Public Use
  Company Number: US-002147023-NVSC2023US087939

PATIENT
  Sex: Female

DRUGS (3)
  1. VOTRIENT [Suspect]
     Active Substance: PAZOPANIB HYDROCHLORIDE
     Indication: Neoplasm malignant
     Dosage: 800 MG, QD (ROUTE: BY MOUTH)
     Route: 048
     Dates: start: 202212
  2. VOTRIENT [Suspect]
     Active Substance: PAZOPANIB HYDROCHLORIDE
     Dosage: 800 MG, QD
     Route: 048
     Dates: start: 202301
  3. EVEROLIMUS [Suspect]
     Active Substance: EVEROLIMUS
     Indication: Product used for unknown indication
     Dosage: UNK
     Route: 065

REACTIONS (11)
  - Dyspnoea [Unknown]
  - Lethargy [Unknown]
  - Hair colour changes [Unknown]
  - Wheezing [Unknown]
  - Hypoaesthesia [Unknown]
  - Constipation [Unknown]
  - Dysuria [Unknown]
  - Chromaturia [Unknown]
  - Decreased appetite [Unknown]
  - Abdominal pain upper [Unknown]
  - Pyrexia [Recovered/Resolved]
